FAERS Safety Report 10039947 (Version 3)
Quarter: 2014Q2

REPORT INFORMATION
  Report Type: Report from Study
  Country: US (occurrence: US)
  Receive Date: 20140326
  Receipt Date: 20140502
  Transmission Date: 20141212
  Serious: Yes (Hospitalization)
  Sender: FDA-Public Use
  Company Number: US-JNJFOC-20140312567

PATIENT
  Age: 13 Year
  Sex: Male
  Weight: 42.6 kg

DRUGS (5)
  1. REMICADE [Suspect]
     Indication: INFLAMMATORY BOWEL DISEASE
     Route: 042
     Dates: start: 20080514, end: 20081224
  2. HUMIRA [Suspect]
     Indication: INFLAMMATORY BOWEL DISEASE
     Route: 065
     Dates: start: 20090127, end: 20090423
  3. THALIDOMIDE [Concomitant]
     Route: 065
  4. VITAMIN D [Concomitant]
     Route: 065
  5. MULTIVITAMINS [Concomitant]
     Route: 065

REACTIONS (1)
  - Anal fistula [Recovered/Resolved]
